FAERS Safety Report 18189113 (Version 2)
Quarter: 2020Q3

REPORT INFORMATION
  Report Type: Spontaneous
  Country: US (occurrence: US)
  Receive Date: 20200824
  Receipt Date: 20200827
  Transmission Date: 20201103
  Serious: No
  Sender: FDA-Public Use
  Company Number: US-BIOGEN-2020BI00846241

PATIENT
  Age: 68 Year
  Sex: Female

DRUGS (5)
  1. TECFIDERA [Suspect]
     Active Substance: DIMETHYL FUMARATE
     Indication: MULTIPLE SCLEROSIS
     Route: 048
     Dates: start: 20200228
  2. DOXYCYCLINE. [Concomitant]
     Active Substance: DOXYCYCLINE
     Indication: ROSACEA
     Route: 065
  3. TECFIDERA [Suspect]
     Active Substance: DIMETHYL FUMARATE
     Route: 048
     Dates: start: 20200306
  4. TECFIDERA [Suspect]
     Active Substance: DIMETHYL FUMARATE
     Dosage: MAINTENANCE DOSE
     Route: 065
     Dates: start: 20200220
  5. TECFIDERA [Suspect]
     Active Substance: DIMETHYL FUMARATE
     Route: 048
     Dates: start: 20200229, end: 20200305

REACTIONS (13)
  - Flushing [Not Recovered/Not Resolved]
  - Gastrooesophageal reflux disease [Unknown]
  - Inflammation [Unknown]
  - Nausea [Not Recovered/Not Resolved]
  - Dermatitis [Unknown]
  - Dyspepsia [Not Recovered/Not Resolved]
  - Gastrointestinal disorder [Unknown]
  - Dehydration [Unknown]
  - Pruritus [Unknown]
  - Multiple sclerosis [Unknown]
  - Product dose omission issue [Not Recovered/Not Resolved]
  - Constipation [Not Recovered/Not Resolved]
  - Hot flush [Unknown]

NARRATIVE: CASE EVENT DATE: 20200228
